FAERS Safety Report 16899531 (Version 1)
Quarter: 2019Q4

REPORT INFORMATION
  Report Type: Spontaneous
  Country: US (occurrence: US)
  Receive Date: 20190815
  Receipt Date: 20190815
  Transmission Date: 20200122
  Serious: No
  Sender: FDA-Public Use
  Company Number: None

PATIENT
  Age: 62 Year
  Sex: Female

DRUGS (1)
  1. PROCRIT [Suspect]
     Active Substance: ERYTHROPOIETIN
     Dates: start: 201905

REACTIONS (2)
  - Wrong technique in product usage process [None]
  - Multiple use of single-use product [None]

NARRATIVE: CASE EVENT DATE: 20190815
